FAERS Safety Report 22053118 (Version 2)
Quarter: 2023Q1

REPORT INFORMATION
  Report Type: Spontaneous
  Country: JP (occurrence: JP)
  Receive Date: 20230302
  Receipt Date: 20230322
  Transmission Date: 20230418
  Serious: Yes (Other)
  Sender: FDA-Public Use
  Company Number: JP-CHUGAI-2023005343

PATIENT
  Age: 76 Year
  Sex: Male
  Weight: 70 kg

DRUGS (6)
  1. VABYSMO [Suspect]
     Active Substance: FARICIMAB-SVOA
     Indication: Diabetic retinal oedema
     Dosage: 0.05 MILLILITER, ONCE/MONTH
     Route: 031
     Dates: start: 20220804, end: 20221108
  2. VABYSMO [Suspect]
     Active Substance: FARICIMAB-SVOA
     Route: 031
     Dates: start: 20230124, end: 20230124
  3. MOXIFLOXACIN HYDROCHLORIDE [Concomitant]
     Active Substance: MOXIFLOXACIN HYDROCHLORIDE
     Dosage: UNK
     Route: 047
     Dates: start: 20220706, end: 202208
  4. NEVANAC [Concomitant]
     Active Substance: NEPAFENAC
     Dosage: UNK
     Route: 047
     Dates: start: 20220706, end: 202208
  5. DIQUAFOSOL TETRASODIUM [Concomitant]
     Active Substance: DIQUAFOSOL TETRASODIUM
     Dosage: UNK
     Route: 047
     Dates: start: 20220727, end: 202208
  6. HYALURONATE SODIUM [Concomitant]
     Active Substance: HYALURONATE SODIUM
     Dosage: UNK
     Route: 047
     Dates: start: 20220727, end: 202208

REACTIONS (3)
  - Vitreous opacities [Recovered/Resolved]
  - Uveitis [Unknown]
  - Anterior chamber inflammation [Recovered/Resolved]

NARRATIVE: CASE EVENT DATE: 20221122
